FAERS Safety Report 5863898-6 (Version None)
Quarter: 2008Q3

REPORT INFORMATION
  Report Type: 
  Country: None (occurrence: None)
  Receive Date: 20080829
  Receipt Date: 20080318
  Transmission Date: 20090109
  Serious: Yes (Death, Other)
  Sender: FDA-Public Use
  Company Number: US-BAYER-200820364GPV

PATIENT

DRUGS (4)
  1. FLUDARABINE [Suspect]
     Indication: CORD BLOOD TRANSPLANT THERAPY
  2. TACROLIMUS [Concomitant]
     Indication: PROPHYLAXIS AGAINST GRAFT VERSUS HOST DISEASE
  3. METHOTREXATE SODIUM [Concomitant]
     Indication: PROPHYLAXIS AGAINST GRAFT VERSUS HOST DISEASE
  4. THYMOGLOBULIN [Concomitant]
     Indication: CORD BLOOD TRANSPLANT THERAPY

REACTIONS (9)
  - ACUTE GRAFT VERSUS HOST DISEASE [None]
  - CHRONIC GRAFT VERSUS HOST DISEASE [None]
  - CYTOMEGALOVIRUS COLITIS [None]
  - CYTOMEGALOVIRUS INFECTION [None]
  - GASTROINTESTINAL HAEMORRHAGE [None]
  - HERPES OESOPHAGITIS [None]
  - LYMPHOPENIA [None]
  - PNEUMONIA FUNGAL [None]
  - PNEUMONITIS [None]
